FAERS Safety Report 10469557 (Version 2)
Quarter: 2014Q4

REPORT INFORMATION
  Report Type: Spontaneous
  Country: US (occurrence: None)
  Receive Date: 20140919
  Receipt Date: 20141222
  Transmission Date: 20150528
  Serious: Yes (Hospitalization)
  Sender: FDA-Public Use
  Company Number: US-001155

PATIENT
  Age: 60 Year
  Sex: Female

DRUGS (2)
  1. SOLUTION FOR PARENTERAL NUTRITION [Concomitant]
  2. GATTEX [Suspect]
     Active Substance: TEDUGLUTIDE\WATER
     Indication: SHORT-BOWEL SYNDROME
     Route: 058
     Dates: start: 201312

REACTIONS (2)
  - Device adhesion issue [None]
  - Device related infection [None]

NARRATIVE: CASE EVENT DATE: 2014
